FAERS Safety Report 4270557-2 (Version None)
Quarter: 2004Q1

REPORT INFORMATION
  Report Type: 
  Country: None (occurrence: None)
  Receive Date: 20040113
  Receipt Date: 20040113
  Transmission Date: 20041129
  Serious: Yes (Hospitalization)
  Sender: FDA-Public Use
  Company Number: None

PATIENT
  Age: 39 Year
  Sex: Male
  Weight: 76.2 kg

DRUGS (7)
  1. THALIDOMIDE [Suspect]
     Indication: ANAPLASTIC ASTROCYTOMA
     Dosage: 100 MG - 400 MG PO QD (ESCALATING)
     Route: 048
     Dates: start: 20031210
  2. CYCLOPHOSPHAMIDE [Suspect]
     Indication: ANAPLASTIC ASTROCYTOMA
     Dosage: 100 MG PO QD
     Route: 048
     Dates: start: 20031210
  3. KEPPRA [Concomitant]
  4. CELEBREX [Concomitant]
  5. DECADRON [Concomitant]
  6. ZANTAC [Concomitant]
  7. VICODIN [Concomitant]

REACTIONS (6)
  - ANXIETY [None]
  - CONFUSIONAL STATE [None]
  - DEPRESSED LEVEL OF CONSCIOUSNESS [None]
  - HEADACHE [None]
  - MOOD ALTERED [None]
  - VOMITING [None]
